FAERS Safety Report 24032307 (Version 1)
Quarter: 2024Q2

REPORT INFORMATION
  Report Type: Report from Study
  Country: JP (occurrence: JP)
  Receive Date: 20240630
  Receipt Date: 20240630
  Transmission Date: 20240715
  Serious: Yes (Other)
  Sender: FDA-Public Use
  Company Number: JP-KISSEI-TV20240484_P_1

PATIENT
  Age: 75 Year
  Sex: Male
  Weight: 70.8 kg

DRUGS (13)
  1. AVACOPAN [Suspect]
     Active Substance: AVACOPAN
     Indication: Microscopic polyangiitis
     Dosage: 10 MILLIGRAM, QD
     Route: 048
     Dates: start: 20221223, end: 20221228
  2. PREDNISOLONE [Suspect]
     Active Substance: PREDNISOLONE
     Indication: Microscopic polyangiitis
     Dosage: PERORAL MEDICINE
     Route: 048
     Dates: end: 20230119
  3. PREDNISOLONE [Suspect]
     Active Substance: PREDNISOLONE
     Dosage: PERORAL MEDICINE
     Route: 048
     Dates: start: 20230120, end: 20230123
  4. PREDNISOLONE [Suspect]
     Active Substance: PREDNISOLONE
     Dosage: 20 MILLIGRAM, QD
     Route: 040
     Dates: start: 20230124, end: 20230308
  5. PREDNISOLONE [Suspect]
     Active Substance: PREDNISOLONE
     Dosage: 10 MILLIGRAM, QD
     Route: 040
     Dates: start: 20230309, end: 20230410
  6. PREDNISOLONE [Suspect]
     Active Substance: PREDNISOLONE
     Dosage: 5 MILLIGRAM, QD
     Route: 040
     Dates: start: 20230411, end: 20230423
  7. ALFACALCIDOL [Concomitant]
     Active Substance: ALFACALCIDOL
     Indication: Product used for unknown indication
     Dosage: PERORAL MEDICINE
     Route: 048
  8. NORVASC [Concomitant]
     Active Substance: AMLODIPINE BESYLATE
     Indication: Product used for unknown indication
     Dosage: PERORAL MEDICINE
     Route: 048
  9. LIPITOR [Concomitant]
     Active Substance: ATORVASTATIN CALCIUM
     Indication: Product used for unknown indication
     Dosage: UNK
     Route: 048
  10. FEBUXOSTAT [Concomitant]
     Active Substance: FEBUXOSTAT
     Route: 048
  11. LEVOTHYROXINE SODIUM [Concomitant]
     Active Substance: LEVOTHYROXINE SODIUM
     Indication: Product used for unknown indication
     Dosage: UNK
     Route: 048
  12. LANSOPRAZOLE [Concomitant]
     Active Substance: LANSOPRAZOLE
     Dosage: PERORAL MEDICINE
     Route: 048
  13. SULFAMETHOXAZOLE\TRIMETHOPRIM [Concomitant]
     Active Substance: SULFAMETHOXAZOLE\TRIMETHOPRIM
     Indication: Product used for unknown indication
     Dosage: PERORAL MEDICINE
     Route: 048

REACTIONS (5)
  - Diverticulitis [Not Recovered/Not Resolved]
  - Sepsis [Not Recovered/Not Resolved]
  - Hepatic function abnormal [Recovering/Resolving]
  - Underdose [Unknown]
  - Intentional product misuse [Unknown]

NARRATIVE: CASE EVENT DATE: 20221223
